FAERS Safety Report 9596239 (Version 1)
Quarter: 2013Q4

REPORT INFORMATION
  Report Type: Spontaneous
  Country: PL (occurrence: PL)
  Receive Date: 20131004
  Receipt Date: 20131004
  Transmission Date: 20140711
  Serious: Yes (Other)
  Sender: FDA-Public Use
  Company Number: PL-BAXTER-2013BAX038375

PATIENT
  Age: 3 Year
  Sex: Female

DRUGS (9)
  1. CIPROFLOXACIN REDIBAG 2 MG/ML [Suspect]
     Indication: PNEUMONIA LIPOID
     Route: 065
  2. FLUCONAZOLE REDIBAG 2 MG/ML [Suspect]
     Indication: PNEUMONIA LIPOID
     Route: 065
  3. HUMAN ALBUMIN 250G/L BAXTER [Suspect]
     Indication: PNEUMONIA LIPOID
     Route: 065
  4. KIOVIG 100 MG/ML SOLUTION FOR INFUSION [Suspect]
     Indication: PNEUMONIA LIPOID
     Dosage: 3X0.4 G/KG
     Route: 065
  5. CEFTRIAXONE [Suspect]
     Indication: PNEUMONIA LIPOID
     Route: 065
  6. CLARITHROMYCIN [Suspect]
     Indication: PNEUMONIA LIPOID
     Route: 065
  7. CLINDAMYCIN [Suspect]
     Indication: PNEUMONIA LIPOID
     Route: 065
  8. MEROPENEM [Suspect]
     Indication: PNEUMONIA LIPOID
     Route: 065
  9. VANCOMYCIN [Suspect]
     Indication: PNEUMONIA LIPOID
     Route: 065

REACTIONS (1)
  - Drug effect decreased [Recovered/Resolved]
